FAERS Safety Report 6889213-7 (Version None)
Quarter: 2010Q3

REPORT INFORMATION
  Report Type: 
  Country: None (occurrence: None)
  Receive Date: 20100730
  Receipt Date: 20080111
  Transmission Date: 20110219
  Serious: No
  Sender: FDA-Public Use
  Company Number: US-PFIZER INC-2008004358

PATIENT
  Age: 82 Year
  Sex: Male

DRUGS (8)
  1. LIPITOR [Suspect]
     Indication: HYPERLIPIDAEMIA
  2. LASIX [Concomitant]
  3. CLONIDINE [Concomitant]
  4. ACETYLSALICYLIC ACID SRT [Concomitant]
  5. POTASSIUM CHLORIDE [Concomitant]
  6. ISOSORBIDE [Concomitant]
  7. LOSARTAN POSTASSIUM [Concomitant]
  8. PEPCID AC [Concomitant]

REACTIONS (1)
  - BLOOD BILIRUBIN INCREASED [None]
